FAERS Safety Report 6035205-X (Version None)
Quarter: 2009Q1

REPORT INFORMATION
  Report Type: 
  Country: None (occurrence: None)
  Receive Date: 20090109
  Receipt Date: 20081231
  Transmission Date: 20090719
  Serious: Yes (Life-Threatening, Hospitalization)
  Sender: FDA-Public Use
  Company Number: GXKR2008GB12370

PATIENT
  Sex: Female
  Weight: 3.1 kg

DRUGS (1)
  1. CEFTRIAXONE [Suspect]
     Dosage: TRANSPLACENTAL
     Route: 064

REACTIONS (8)
  - AGITATION NEONATAL [None]
  - CAESAREAN SECTION [None]
  - DYSKINESIA NEONATAL [None]
  - FEELING JITTERY [None]
  - HYPOXIC ENCEPHALOPATHY [None]
  - INFANTILE APNOEIC ATTACK [None]
  - MATERNAL DRUGS AFFECTING FOETUS [None]
  - NEONATAL DISORDER [None]
